FAERS Safety Report 4908985-1 (Version None)
Quarter: 2006Q1

REPORT INFORMATION
  Report Type: 
  Country: None (occurrence: None)
  Receive Date: 20060210
  Receipt Date: 20060210
  Transmission Date: 20060701
  Serious: Yes (Other)
  Sender: FDA-Public Use
  Company Number: None

PATIENT
  Sex: Female

DRUGS (1)
  1. LEXAPRO [Suspect]
     Indication: DEPRESSION
     Dosage: 10MG PO Q DAILY
     Route: 048
     Dates: start: 20060128, end: 20060201

REACTIONS (2)
  - ERYTHEMA [None]
  - RASH [None]
